FAERS Safety Report 14401783 (Version 5)
Quarter: 2024Q4

REPORT INFORMATION
  Report Type: Spontaneous
  Country: US (occurrence: US)
  Receive Date: 20180117
  Receipt Date: 20241010
  Transmission Date: 20250114
  Serious: Yes (Other)
  Sender: PFIZER
  Company Number: US-PFIZER INC-2018016016

PATIENT
  Age: 64 Year
  Sex: Male

DRUGS (2)
  1. CLINDAMYCIN HYDROCHLORIDE [Suspect]
     Active Substance: CLINDAMYCIN HYDROCHLORIDE
     Indication: Babesiosis
     Dosage: UNK
  2. QUININE [Suspect]
     Active Substance: QUININE
     Indication: Babesiosis
     Dosage: UNK

REACTIONS (6)
  - Acute kidney injury [Unknown]
  - Acute respiratory distress syndrome [Unknown]
  - Septic shock [Unknown]
  - Bradycardia [Unknown]
  - Arrhythmia [Unknown]
  - Atrioventricular block [Unknown]
